FAERS Safety Report 10222714 (Version 1)
Quarter: 2014Q2

REPORT INFORMATION
  Report Type: Spontaneous
  Country: IR (occurrence: IR)
  Receive Date: 20140606
  Receipt Date: 20140606
  Transmission Date: 20141212
  Serious: Yes (Other)
  Sender: FDA-Public Use
  Company Number: IR-ABBVIE-14P-080-1245174-00

PATIENT
  Age: 44 Year
  Sex: Male

DRUGS (6)
  1. CLARITHROMYCIN [Suspect]
     Indication: HELICOBACTER INFECTION
  2. CLARITHROMYCIN [Suspect]
     Indication: PEPTIC ULCER
  3. AMOXICILLIN [Concomitant]
     Indication: PEPTIC ULCER
  4. AMOXICILLIN [Concomitant]
     Indication: HELICOBACTER INFECTION
  5. PANTOPRAZOLE [Concomitant]
     Indication: HELICOBACTER INFECTION
  6. PANTOPRAZOLE [Concomitant]
     Indication: PEPTIC ULCER
     Dosage: (20 MG DAILY) FOR 15 DAYS, 1 MONTH, AND 6 MONTHS, RESPECTIVELY

REACTIONS (3)
  - Hypomania [Recovered/Resolved]
  - Hypomania [Unknown]
  - Therapeutic response changed [Unknown]
